FAERS Safety Report 14213277 (Version 3)
Quarter: 2017Q4

REPORT INFORMATION
  Report Type: Spontaneous
  Country: JP (occurrence: JP)
  Receive Date: 20171122
  Receipt Date: 20171227
  Transmission Date: 20180321
  Serious: Yes (Hospitalization, Other)
  Sender: FDA-Public Use
  Company Number: JP-PFIZER INC-2017496092

PATIENT
  Sex: Male

DRUGS (4)
  1. LYRICA [Suspect]
     Active Substance: PREGABALIN
     Indication: NEURALGIA
     Dosage: 225 MG, DAILY (75 MG IN THE MORNING AND 150 MG IN THE EVENING)
     Route: 048
     Dates: start: 201704
  2. LYRICA [Suspect]
     Active Substance: PREGABALIN
     Indication: NEURALGIA
     Dosage: UNK
     Route: 048
  3. LYRICA [Suspect]
     Active Substance: PREGABALIN
     Dosage: 75 MG, DAILY
     Route: 048
  4. LYRICA [Suspect]
     Active Substance: PREGABALIN
     Dosage: 150 MG, DAILY (TWO 75-MG CAPSULES/ 75 MG IN THE MORNING AND 75 MG IN THE EVENING)
     Route: 048

REACTIONS (8)
  - Dizziness [Unknown]
  - Balance disorder [Unknown]
  - Somnolence [Unknown]
  - Drug dependence [Unknown]
  - Condition aggravated [Unknown]
  - Road traffic accident [Unknown]
  - Malaise [Unknown]
  - Pain [Unknown]
